FAERS Safety Report 12716502 (Version 3)
Quarter: 2016Q4

REPORT INFORMATION
  Report Type: Spontaneous
  Country: RU (occurrence: RU)
  Receive Date: 20160906
  Receipt Date: 20161205
  Transmission Date: 20170207
  Serious: Yes (Hospitalization, Other)
  Sender: FDA-Public Use
  Company Number: RU-AMGEN-RUSSP2016115547

PATIENT
  Age: 91 Year
  Sex: Female

DRUGS (2)
  1. PREDNISOLON [Concomitant]
     Active Substance: PREDNISOLONE
     Dosage: UNK
     Dates: start: 2006
  2. NPLATE [Suspect]
     Active Substance: ROMIPLOSTIM
     Indication: IMMUNE THROMBOCYTOPENIC PURPURA
     Dosage: UNK
     Route: 065

REACTIONS (7)
  - Left ventricular hypertrophy [Unknown]
  - Pulmonary fibrosis [Unknown]
  - Osteoporosis [Unknown]
  - Emphysema [Unknown]
  - Gangrene [Unknown]
  - Peripheral arterial occlusive disease [Unknown]
  - Arterial insufficiency [Unknown]

NARRATIVE: CASE EVENT DATE: 20060330
